FAERS Safety Report 9013388 (Version 1)
Quarter: 2013Q1

REPORT INFORMATION
  Report Type: Spontaneous
  Country: US (occurrence: US)
  Receive Date: 20130114
  Receipt Date: 20130114
  Transmission Date: 20140127
  Serious: Yes (Hospitalization)
  Sender: FDA-Public Use
  Company Number: US-BAYER-2013-003341

PATIENT
  Age: 39 Year
  Sex: Female
  Weight: 57.14 kg

DRUGS (3)
  1. YAZ [Suspect]
  2. GIANVI [Suspect]
  3. CELEXA [Concomitant]
     Indication: DEPRESSION
     Dosage: 10 MG, DAILY
     Route: 048

REACTIONS (1)
  - Pulmonary embolism [None]
